FAERS Safety Report 16273794 (Version 2)
Quarter: 2019Q3

REPORT INFORMATION
  Report Type: Spontaneous
  Country: US (occurrence: US)
  Receive Date: 20190503
  Receipt Date: 20190805
  Transmission Date: 20191004
  Serious: No
  Sender: FDA-Public Use
  Company Number: US-RADIUS HEALTH INC.-2019US001240

PATIENT
  Sex: Female

DRUGS (1)
  1. TYMLOS [Suspect]
     Active Substance: ABALOPARATIDE
     Indication: OSTEOPOROSIS POSTMENOPAUSAL
     Dosage: 80MCG, DAILY
     Route: 058
     Dates: start: 20190320, end: 20190420

REACTIONS (7)
  - Dizziness [Recovering/Resolving]
  - Fatigue [Unknown]
  - Asthenia [Unknown]
  - Bradyphrenia [Unknown]
  - Decreased appetite [Unknown]
  - Nausea [Unknown]
  - Palpitations [Recovering/Resolving]
